FAERS Safety Report 14871352 (Version 1)
Quarter: 2018Q2

REPORT INFORMATION
  Report Type: Spontaneous
  Country: US (occurrence: US)
  Receive Date: 20180509
  Receipt Date: 20180509
  Transmission Date: 20180711
  Serious: No
  Sender: FDA-Public Use
  Company Number: US-SHIRE-US201817672

PATIENT
  Age: 35 Year
  Sex: Female

DRUGS (1)
  1. NATPARA (PARATHYROID HORMONE) [Suspect]
     Active Substance: PARATHYROID HORMONE
     Indication: HYPOPARATHYROIDISM
     Dosage: 100 UNK, 1X/DAY:QD
     Route: 058
     Dates: start: 20151201

REACTIONS (1)
  - Mass [Recovering/Resolving]

NARRATIVE: CASE EVENT DATE: 20180502
